FAERS Safety Report 16942950 (Version 1)
Quarter: 2019Q4

REPORT INFORMATION
  Report Type: Spontaneous
  Country: US (occurrence: US)
  Receive Date: 20191021
  Receipt Date: 20191021
  Transmission Date: 20200122
  Serious: Yes (Other)
  Sender: FDA-Public Use
  Company Number: US-ALLERGAN-1941908US

PATIENT
  Sex: Female

DRUGS (3)
  1. VIOKACE [Suspect]
     Active Substance: PANCRELIPASE AMYLASE\PANCRELIPASE LIPASE\PANCRELIPASE PROTEASE
     Dosage: 1 CAPSULE AFTER BREAKFAST, 2 AFTER LUNCH, 3 AFTER DINNER
     Dates: start: 201905, end: 201906
  2. PANTOPRAZOL [Concomitant]
     Active Substance: PANTOPRAZOLE SODIUM
     Dosage: 40 MG, QAM
  3. VIOKACE [Suspect]
     Active Substance: PANCRELIPASE AMYLASE\PANCRELIPASE LIPASE\PANCRELIPASE PROTEASE
     Indication: PANCREATIC FAILURE
     Dosage: 8 DF, QD
     Dates: start: 201906, end: 20191003

REACTIONS (7)
  - Urticaria [Recovering/Resolving]
  - Intentional product misuse [Unknown]
  - Product dispensing error [Unknown]
  - Laparoscopic surgery [Unknown]
  - Weight decreased [Not Recovered/Not Resolved]
  - Pruritus [Recovering/Resolving]
  - Skin lesion [Recovering/Resolving]

NARRATIVE: CASE EVENT DATE: 2019
